FAERS Safety Report 23783200 (Version 1)
Quarter: 2024Q2

REPORT INFORMATION
  Report Type: Report from Study
  Country: US (occurrence: None)
  Receive Date: 20240425
  Receipt Date: 20240425
  Transmission Date: 20240716
  Serious: Yes (Other)
  Sender: FDA-Public Use
  Company Number: 2024A094972

PATIENT
  Sex: Female

DRUGS (1)
  1. FASENRA [Suspect]
     Active Substance: BENRALIZUMAB
     Indication: Illness
     Route: 058

REACTIONS (3)
  - Suicidal behaviour [Unknown]
  - Brain neoplasm [Unknown]
  - Dyspnoea [Unknown]
